FAERS Safety Report 6741703-3 (Version None)
Quarter: 2010Q2

REPORT INFORMATION
  Report Type: 
  Country: None (occurrence: None)
  Receive Date: 20100526
  Receipt Date: 20100514
  Transmission Date: 20101027
  Serious: Yes (Other)
  Sender: FDA-Public Use
  Company Number: US-SANOFI-AVENTIS-2010SA028747

PATIENT
  Sex: Female

DRUGS (2)
  1. PLAVIX [Suspect]
     Route: 048
  2. PREVACID [Suspect]
     Route: 048

REACTIONS (2)
  - COLOSTOMY [None]
  - POST PROCEDURAL HAEMORRHAGE [None]
